FAERS Safety Report 18763889 (Version 2)
Quarter: 2021Q1

REPORT INFORMATION
  Report Type: Spontaneous
  Country: GB (occurrence: GB)
  Receive Date: 20210120
  Receipt Date: 20210215
  Transmission Date: 20210419
  Serious: Yes (Other)
  Sender: FDA-Public Use
  Company Number: GB-BRISTOL-MYERS SQUIBB COMPANY-BMS-2021-001768

PATIENT
  Age: 50 Year
  Sex: Female

DRUGS (2)
  1. OMEPRAZOLE. [Concomitant]
     Active Substance: OMEPRAZOLE
     Indication: REFLUX GASTRITIS
     Dosage: 20 MILLIGRAM, QD
     Route: 048
  2. NIVOLUMAB [Suspect]
     Active Substance: NIVOLUMAB
     Indication: COLORECTAL CANCER
     Dosage: 3 MILLIGRAM/KILOGRAM, Q2WK
     Route: 042
     Dates: start: 20191003, end: 20200401

REACTIONS (3)
  - Deep vein thrombosis [Recovered/Resolved]
  - Intentional product use issue [Unknown]
  - Immune-mediated hepatitis [Recovered/Resolved]

NARRATIVE: CASE EVENT DATE: 20200401
